FAERS Safety Report 7362476-X (Version None)
Quarter: 2011Q1

REPORT INFORMATION
  Report Type: 
  Country: None (occurrence: None)
  Receive Date: 20110318
  Receipt Date: 20110310
  Transmission Date: 20110831
  Serious: Yes (Other)
  Sender: FDA-Public Use
  Company Number: GB-RB-023755-11

PATIENT
  Age: 42 Year
  Sex: Male

DRUGS (4)
  1. BUTRANS [Suspect]
     Route: 062
     Dates: start: 20080801
  2. BUTRANS [Suspect]
     Indication: GROIN PAIN
     Dosage: DOSE IS 10-20 MCG PER HOUR
     Route: 062
  3. TRANSTEC [Suspect]
     Indication: GROIN PAIN
     Route: 062
     Dates: start: 20080801, end: 20080914
  4. BUTRANS [Suspect]
     Dosage: DOSING DETAILS UNKNOWN
     Route: 062
     Dates: start: 20080429, end: 20080801

REACTIONS (4)
  - SKIN MACERATION [None]
  - SKIN ODOUR ABNORMAL [None]
  - HYPERSENSITIVITY [None]
  - SKIN IRRITATION [None]
